FAERS Safety Report 22367721 (Version 4)
Quarter: 2023Q2

REPORT INFORMATION
  Report Type: Report from Study
  Country: HR (occurrence: HR)
  Receive Date: 20230525
  Receipt Date: 20230612
  Transmission Date: 20230721
  Serious: Yes (Life-Threatening, Hospitalization)
  Sender: FDA-Public Use
  Company Number: HR-ABBVIE-5178458

PATIENT
  Age: 51 Year
  Sex: Female
  Weight: 69 kg

DRUGS (9)
  1. UPADACITINIB [Suspect]
     Active Substance: UPADACITINIB
     Indication: Dermatitis atopic
     Route: 048
     Dates: start: 20190923, end: 20200119
  2. UPADACITINIB [Suspect]
     Active Substance: UPADACITINIB
     Indication: Dermatitis atopic
     Route: 048
     Dates: start: 20200120, end: 20230212
  3. EUTHYROX [Concomitant]
     Active Substance: LEVOTHYROXINE SODIUM
     Indication: Hyperthyroidism
     Route: 048
     Dates: start: 200712
  4. XERACALM [Concomitant]
     Indication: Dry skin prophylaxis
     Route: 061
     Dates: start: 201808
  5. MIRENA [Concomitant]
     Active Substance: LEVONORGESTREL
     Indication: Contraception
     Dosage: INTRAUTERINE DEVICE
     Route: 067
     Dates: start: 20190815
  6. MAXITROL [Concomitant]
     Active Substance: DEXAMETHASONE\NEOMYCIN SULFATE\POLYMYXIN B SULFATE
     Indication: Dermatitis atopic
     Dosage: TIME INTERVAL: AS NECESSARY
     Route: 061
     Dates: start: 20210301
  7. DIOVAN [Concomitant]
     Active Substance: VALSARTAN
     Indication: Hypertension
     Route: 048
     Dates: start: 20210401
  8. BELODERM IN BELOBAZA [Concomitant]
     Indication: Dermatitis atopic
     Dosage: TIME INTERVAL: AS NECESSARY: DOSE: 1 APPLICATION
     Route: 003
     Dates: start: 20200506
  9. OLOPATADINE [Concomitant]
     Active Substance: OLOPATADINE
     Indication: Hordeolum
     Route: 047
     Dates: start: 20230208, end: 20230213

REACTIONS (2)
  - Staphylococcal sepsis [Recovered/Resolved]
  - Pneumonia staphylococcal [Recovered/Resolved]

NARRATIVE: CASE EVENT DATE: 20230213
